FAERS Safety Report 6309798-9 (Version None)
Quarter: 2009Q3

REPORT INFORMATION
  Report Type: 
  Country: None (occurrence: None)
  Receive Date: 20090814
  Receipt Date: 20090806
  Transmission Date: 20100115
  Serious: Yes (Other)
  Sender: FDA-Public Use
  Company Number: US-ELI_LILLY_AND_COMPANY-US200907001194

PATIENT
  Sex: Female

DRUGS (15)
  1. FORTEO [Suspect]
     Indication: OSTEOPOROSIS POSTMENOPAUSAL
     Dosage: 20 UG, DAILY (1/D)
     Route: 058
     Dates: start: 20090519
  2. FORTEO [Suspect]
  3. CYMBALTA [Concomitant]
     Dosage: UNK, DAILY (1/D)
     Dates: start: 20080101
  4. COMBIVENT [Concomitant]
  5. ADVAIR HFA [Concomitant]
  6. PREDNISONE [Concomitant]
  7. LORAZEPAM [Concomitant]
  8. ACTONEL [Concomitant]
  9. GABAPENTIN [Concomitant]
  10. HYDROCODONE [Concomitant]
     Dosage: 5500
  11. RISPERDAL [Concomitant]
     Dosage: .5
  12. SINGULAIR [Concomitant]
  13. FLUOXETINE [Concomitant]
     Dosage: 10 MG, UNK
  14. METHENAMINE TAB [Concomitant]
     Dosage: 1 MG, UNK
  15. CARBIDOPA-LEVODOPA [Concomitant]
     Indication: PARKINSON'S DISEASE
     Dosage: 25-100

REACTIONS (3)
  - FALL [None]
  - FRACTURE [None]
  - URINARY TRACT INFECTION [None]
